FAERS Safety Report 8811309 (Version 1)
Quarter: 2012Q4

REPORT INFORMATION
  Report Type: 
  Country: US (occurrence: US)
  Receive Date: 20120927
  Receipt Date: 20120927
  Transmission Date: 20130627
  Serious: Yes (Other)
  Sender: FDA-Public Use
  Company Number: US-ELI_LILLY_AND_COMPANY-US201209004438

PATIENT
  Sex: Female

DRUGS (2)
  1. CYMBALTA [Suspect]
     Dosage: 90 mg, unknown
  2. CYMBALTA [Suspect]
     Dosage: 120 mg, unknown

REACTIONS (5)
  - Suicidal ideation [Unknown]
  - Self injurious behaviour [Unknown]
  - Agitation [Unknown]
  - Thinking abnormal [Unknown]
  - Intentional drug misuse [Unknown]
